FAERS Safety Report 12412942 (Version 3)
Quarter: 2016Q4

REPORT INFORMATION
  Report Type: Spontaneous
  Country: AU (occurrence: AU)
  Receive Date: 20160527
  Receipt Date: 20161108
  Transmission Date: 20170207
  Serious: Yes (Hospitalization, Other)
  Sender: FDA-Public Use
  Company Number: AU-INDIVIOR LIMITED-INDV-090830-2016

PATIENT
  Age: 32 Year
  Sex: Female
  Weight: 109 kg

DRUGS (24)
  1. PARACETAMOL [Concomitant]
     Active Substance: ACETAMINOPHEN
     Indication: HEADACHE
     Dosage: 1G, 30 MINS PRIOR TO BED
     Route: 065
     Dates: start: 20160506
  2. HERRON [Concomitant]
     Indication: INFLAMMATION
  3. THYROXINE [Concomitant]
     Active Substance: LEVOTHYROXINE
     Indication: PRODUCT USED FOR UNKNOWN INDICATION
     Dosage: 500 MCG PER DAY
     Route: 065
  4. SUBOXONE [Suspect]
     Active Substance: BUPRENORPHINE HYDROCHLORIDE\NALOXONE HYDROCHLORIDE
     Indication: DRUG DEPENDENCE
     Dosage: 2 ONCE EACH DAY, TOTAL DOSE 12MG
     Route: 065
     Dates: start: 20160524
  5. MAXIGESIC                          /06880501/ [Concomitant]
     Indication: PRODUCT USED FOR UNKNOWN INDICATION
     Dosage: 150 MG/500 MG
     Route: 065
     Dates: end: 20160517
  6. PAXAM                              /00285201/ [Concomitant]
     Indication: ANXIETY
     Dosage: 0.5 MG, AT NIGHT
     Route: 065
     Dates: end: 20160517
  7. SUBOXONE [Suspect]
     Active Substance: BUPRENORPHINE HYDROCHLORIDE\NALOXONE HYDROCHLORIDE
     Dosage: 12MG/DAY
     Route: 065
     Dates: start: 20160511
  8. SALBUTAMOL [Concomitant]
     Active Substance: ALBUTEROL
     Indication: ASTHMA
     Dosage: UNK, PRN
  9. FRUSEMIDE                          /00032601/ [Concomitant]
     Active Substance: FUROSEMIDE
     Indication: PRODUCT USED FOR UNKNOWN INDICATION
     Dosage: UNK
     Route: 065
  10. LEXAPRO [Concomitant]
     Active Substance: ESCITALOPRAM OXALATE
     Indication: PRODUCT USED FOR UNKNOWN INDICATION
     Dosage: 30 MG, QD
     Route: 065
  11. ESCITALOPRAM DRLA [Concomitant]
     Indication: DEPRESSION
     Dosage: 1 TABLET AND HALF TABLET IN MORNING
     Route: 065
  12. HERRON [Concomitant]
     Indication: PAIN
     Dosage: 1-2 TABLETS, TID WHEN REQUIRED WITH FOOD
     Route: 065
  13. SUBOXONE [Suspect]
     Active Substance: BUPRENORPHINE HYDROCHLORIDE\NALOXONE HYDROCHLORIDE
     Dosage: 8MG PER DAY
     Route: 065
     Dates: start: 20160506
  14. SUBOXONE [Suspect]
     Active Substance: BUPRENORPHINE HYDROCHLORIDE\NALOXONE HYDROCHLORIDE
     Indication: DRUG DEPENDENCE
     Dosage: 1 ONCE EACH DAY (TOTAL DOSE OF 12 MG)
     Route: 065
     Dates: start: 20160524
  15. PREDNISONE. [Concomitant]
     Active Substance: PREDNISONE
     Indication: ASTHMA
     Dosage: UNK
     Route: 065
  16. ESCITALOPRAM DRLA [Concomitant]
     Dosage: 30 MG UNK
     Route: 065
  17. HERRON [Concomitant]
     Indication: PYREXIA
  18. DYMADON P [Concomitant]
     Indication: PAIN
     Dosage: 1-2 TABLETS EVERY SIX HOURS WHEN REQUIRED
     Route: 065
  19. DYMADON P [Concomitant]
     Indication: PYREXIA
  20. SUBOXONE [Suspect]
     Active Substance: BUPRENORPHINE HYDROCHLORIDE\NALOXONE HYDROCHLORIDE
     Indication: DRUG DEPENDENCE
     Dosage: 4 MG, UNK
     Route: 065
     Dates: start: 20160504
  21. SUBOXONE [Suspect]
     Active Substance: BUPRENORPHINE HYDROCHLORIDE\NALOXONE HYDROCHLORIDE
     Dosage: 16 MG/DAY
     Route: 065
     Dates: start: 20160513, end: 20160517
  22. EUTROXSIG [Concomitant]
     Active Substance: LEVOTHYROXINE SODIUM
     Indication: PRODUCT USED FOR UNKNOWN INDICATION
     Dosage: 50 MCG, 3 TABLETS IN MORNING
     Route: 065
     Dates: end: 20160524
  23. SUBOXONE [Suspect]
     Active Substance: BUPRENORPHINE HYDROCHLORIDE\NALOXONE HYDROCHLORIDE
     Dosage: 12MG/DAY
     Route: 065
     Dates: start: 20160518
  24. SUBOXONE [Suspect]
     Active Substance: BUPRENORPHINE HYDROCHLORIDE\NALOXONE HYDROCHLORIDE
     Dosage: 8 MG DAILY
     Route: 065
     Dates: start: 20160608

REACTIONS (5)
  - Cardiac failure congestive [Unknown]
  - Asthma [Unknown]
  - Drug withdrawal syndrome [Unknown]
  - Hypothyroidism [Unknown]
  - Drug dependence [Recovered/Resolved]

NARRATIVE: CASE EVENT DATE: 2016
